FAERS Safety Report 15061858 (Version 1)
Quarter: 2018Q2

REPORT INFORMATION
  Report Type: Spontaneous
  Country: US (occurrence: US)
  Receive Date: 20180625
  Receipt Date: 20180625
  Transmission Date: 20180711
  Serious: No
  Sender: FDA-Public Use
  Company Number: US-B.I. PHARMACEUTICALS,INC./RIDGEFIELD-2018-BI-031759

PATIENT
  Age: 75 Year
  Sex: Female

DRUGS (1)
  1. PRADAXA [Suspect]
     Active Substance: DABIGATRAN ETEXILATE MESYLATE
     Indication: ATRIAL FIBRILLATION
     Dosage: 1 CAPUSLE BID;  FORM STRENGTH: 75 MG; FORMULATION: CAPSULE? ADMIN? YES ?ACTION: DOSE NOT CHANGED
     Route: 065
     Dates: start: 201710, end: 20180616

REACTIONS (5)
  - Cough [Not Recovered/Not Resolved]
  - Dysphemia [Unknown]
  - Gastritis [Not Recovered/Not Resolved]
  - Cardiac disorder [Recovered/Resolved]
  - Eructation [Recovered/Resolved]

NARRATIVE: CASE EVENT DATE: 201710
